FAERS Safety Report 15022649 (Version 1)
Quarter: 2018Q2

REPORT INFORMATION
  Report Type: Spontaneous
  Country: ZA (occurrence: ZA)
  Receive Date: 20180618
  Receipt Date: 20180618
  Transmission Date: 20180711
  Serious: Yes (Hospitalization)
  Sender: FDA-Public Use
  Company Number: ZA-PFIZER INC-2018242231

PATIENT
  Age: 74 Year
  Sex: Female

DRUGS (2)
  1. ASPAVOR [Suspect]
     Active Substance: ATORVASTATIN
     Dosage: 10 MG, UNK
  2. ALCHERA [Suspect]
     Active Substance: ZOPICLONE
     Dosage: 7.5 MG, UNK

REACTIONS (1)
  - Contusion [Unknown]
